FAERS Safety Report 5505157-7 (Version None)
Quarter: 2007Q4

REPORT INFORMATION
  Report Type: 
  Country: None (occurrence: None)
  Receive Date: 20071102
  Receipt Date: 20071023
  Transmission Date: 20080405
  Serious: Yes (Death, Hospitalization)
  Sender: FDA-Public Use
  Company Number: CA-AMGEN-KDL245978

PATIENT
  Sex: Male

DRUGS (1)
  1. ENBREL [Suspect]
     Indication: RHEUMATOID ARTHRITIS
     Route: 058
     Dates: start: 20070321, end: 20070601

REACTIONS (5)
  - DYSPEPSIA [None]
  - HYPERHIDROSIS [None]
  - LOCALISED INFECTION [None]
  - PNEUMONIA ASPIRATION [None]
  - VOMITING [None]
